FAERS Safety Report 13065153 (Version 1)
Quarter: 2016Q4

REPORT INFORMATION
  Report Type: Report from Study
  Country: US (occurrence: US)
  Receive Date: 20161227
  Receipt Date: 20161227
  Transmission Date: 20170207
  Serious: Yes (Other)
  Sender: FDA-Public Use
  Company Number: US-JNJFOC-20161005258

PATIENT
  Age: 80 Year
  Sex: Male

DRUGS (8)
  1. TERAZOSIN [Concomitant]
     Active Substance: TERAZOSIN\TERAZOSIN HYDROCHLORIDE
  2. PROPRANOLOL [Concomitant]
     Active Substance: PROPRANOLOL\PROPRANOLOL HYDROCHLORIDE
  3. SYNTHROID [Concomitant]
     Active Substance: LEVOTHYROXINE SODIUM
  4. ACYCLOVIR. [Concomitant]
     Active Substance: ACYCLOVIR
  5. GLUCOSAMINE [Concomitant]
     Active Substance: GLUCOSAMINE
  6. METHYLSULFONYLMETHANE [Concomitant]
     Active Substance: DIMETHYL SULFONE
  7. IMBRUVICA [Suspect]
     Active Substance: IBRUTINIB
     Indication: ACUTE LYMPHOCYTIC LEUKAEMIA
     Dosage: START PERIOD: 1015 DAYS
     Route: 048
     Dates: start: 20131220
  8. IMBRUVICA [Suspect]
     Active Substance: IBRUTINIB
     Indication: ACUTE LYMPHOCYTIC LEUKAEMIA
     Dosage: 1015 DAYS : START PERIOD
     Route: 048
     Dates: start: 20151211

REACTIONS (6)
  - Epistaxis [Unknown]
  - Off label use [Unknown]
  - Product use issue [Unknown]
  - Platelet count decreased [Not Recovered/Not Resolved]
  - Blood urine present [Not Recovered/Not Resolved]
  - Prostate cancer metastatic [Not Recovered/Not Resolved]

NARRATIVE: CASE EVENT DATE: 20131220
